FAERS Safety Report 7953415-9 (Version None)
Quarter: 2011Q4

REPORT INFORMATION
  Report Type: 
  Country: None (occurrence: None)
  Receive Date: 20111202
  Receipt Date: 20111121
  Transmission Date: 20120403
  Serious: Yes (Hospitalization, Other)
  Sender: FDA-Public Use
  Company Number: CA-ELI_LILLY_AND_COMPANY-CA201111006271

PATIENT
  Sex: Male

DRUGS (13)
  1. ZYPREXA [Suspect]
     Indication: SCHIZOPHRENIA
     Dosage: 5 MG, UNK
  2. CLONAZEPAM [Concomitant]
  3. ALTACE [Concomitant]
  4. GABAPENTIN [Concomitant]
  5. XANAX [Concomitant]
  6. LITHIUM [Concomitant]
  7. ZOLOFT [Concomitant]
  8. SEROQUEL [Concomitant]
  9. ZYPREXA [Suspect]
     Dosage: 10 MG, UNK
  10. EFFEXOR [Concomitant]
  11. METOPROLOL [Concomitant]
  12. ZYPREXA [Suspect]
     Indication: SCHIZOPHRENIA
     Dosage: 10 MG, UNK
  13. NOZINAN [Concomitant]

REACTIONS (5)
  - WEIGHT INCREASED [None]
  - MYOCARDIAL INFARCTION [None]
  - HYPERTENSION [None]
  - HYPERGLYCAEMIA [None]
  - TYPE 2 DIABETES MELLITUS [None]
